FAERS Safety Report 8762396 (Version 2)
Quarter: 2013Q1

REPORT INFORMATION
  Report Type: Spontaneous
  Country: US (occurrence: US)
  Receive Date: 20120830
  Receipt Date: 20130117
  Transmission Date: 20140127
  Serious: No
  Sender: FDA-Public Use
  Company Number: US-PFIZER INC-2012211733

PATIENT
  Age: 60 Year
  Sex: Female
  Weight: 81.6 kg

DRUGS (3)
  1. XALKORI [Suspect]
     Indication: LUNG NEOPLASM MALIGNANT
     Dosage: 250 MG, 2X/DAY
     Dates: start: 201208
  2. WARFARIN [Concomitant]
     Indication: ANTICOAGULANT THERAPY
     Dosage: 5 MG, DAILY
     Dates: start: 2012
  3. WARFARIN [Concomitant]
     Indication: PULMONARY THROMBOSIS

REACTIONS (4)
  - Vision blurred [Unknown]
  - Photopsia [Not Recovered/Not Resolved]
  - Nasopharyngitis [Recovering/Resolving]
  - Influenza [Recovering/Resolving]
